FAERS Safety Report 15279521 (Version 3)
Quarter: 2022Q1

REPORT INFORMATION
  Report Type: Spontaneous
  Country: US (occurrence: US)
  Receive Date: 20180815
  Receipt Date: 20220105
  Transmission Date: 20220424
  Serious: No
  Sender: FDA-Public Use
  Company Number: US-PFIZER INC-2017541611

PATIENT
  Age: 57 Year
  Sex: Female

DRUGS (12)
  1. DOCETAXEL [Suspect]
     Active Substance: DOCETAXEL
     Indication: Breast cancer female
     Dosage: 165 MG, CYCLIC (EVERY THREE WEEKS)
     Dates: start: 20090319, end: 20090722
  2. DOCETAXEL [Suspect]
     Active Substance: DOCETAXEL
     Dosage: 165 MG, CYCLIC (EVERY THREE WEEKS)
     Dates: start: 20120828, end: 20130122
  3. TAXOTERE [Suspect]
     Active Substance: DOCETAXEL
     Indication: Breast cancer female
     Dosage: 165 MG, CYCLIC (EVERY THREE WEEKS)
     Dates: start: 20090319, end: 20090722
  4. TAXOTERE [Suspect]
     Active Substance: DOCETAXEL
     Dosage: 165 MG, CYCLIC (EVERY THREE WEEKS)
     Dates: start: 20120828, end: 20130122
  5. PARAPLATIN [Concomitant]
     Active Substance: CARBOPLATIN
     Indication: Chemotherapy
     Dosage: UNK
  6. HERCEPTIN [Concomitant]
     Active Substance: TRASTUZUMAB
     Indication: Chemotherapy
     Dosage: UNK
  7. LISINOPRIL [Concomitant]
     Active Substance: LISINOPRIL
     Dosage: UNK
     Dates: start: 1992
  8. GABAPENTIN [Concomitant]
     Active Substance: GABAPENTIN
     Dosage: UNK
     Dates: start: 2005
  9. CRESTOR [Concomitant]
     Active Substance: ROSUVASTATIN CALCIUM
     Dosage: UNK
     Dates: start: 2007
  10. CARVEDILOL [Concomitant]
     Active Substance: CARVEDILOL
     Dosage: UNK
     Dates: start: 2009
  11. ASPIRIN [Concomitant]
     Active Substance: ASPIRIN
     Dosage: UNK
     Dates: start: 2009
  12. CLOPIDOGREL [Concomitant]
     Active Substance: CLOPIDOGREL BISULFATE
     Dosage: UNK
     Dates: start: 2009

REACTIONS (7)
  - Alopecia [Not Recovered/Not Resolved]
  - Madarosis [Not Recovered/Not Resolved]
  - Hair disorder [Not Recovered/Not Resolved]
  - Hair colour changes [Not Recovered/Not Resolved]
  - Hair texture abnormal [Not Recovered/Not Resolved]
  - Anxiety [Unknown]
  - Depression [Unknown]

NARRATIVE: CASE EVENT DATE: 20130722
